FAERS Safety Report 12206681 (Version 1)
Quarter: 2016Q1

REPORT INFORMATION
  Report Type: Spontaneous
  Country: US (occurrence: None)
  Receive Date: 20160323
  Receipt Date: 20160323
  Transmission Date: 20160526
  Serious: No
  Sender: FDA-Public Use
  Company Number: None

PATIENT
  Age: 63 Year
  Sex: Male

DRUGS (4)
  1. LOSARTAN POT [Concomitant]
     Active Substance: LOSARTAN POTASSIUM
  2. SOVALDI [Suspect]
     Active Substance: SOFOSBUVIR
     Indication: CHRONIC HEPATITIS C
     Dosage: 1 TAB DAILY PO
     Route: 048
     Dates: start: 20150217, end: 201603
  3. LEVOTHYROXIN [Concomitant]
     Active Substance: LEVOTHYROXINE
  4. RIBASPHERE RIBAPAK [Suspect]
     Active Substance: RIBAVIRIN
     Indication: CHRONIC HEPATITIS C
     Route: 048
     Dates: start: 20150217, end: 201603

REACTIONS (8)
  - Headache [None]
  - Speech disorder [None]
  - Tinnitus [None]
  - Hypoaesthesia [None]
  - Insomnia [None]
  - Fatigue [None]
  - Vision blurred [None]
  - Motor dysfunction [None]

NARRATIVE: CASE EVENT DATE: 201603
